FAERS Safety Report 7548696-X (Version None)
Quarter: 2011Q2

REPORT INFORMATION
  Report Type: 
  Country: None (occurrence: None)
  Receive Date: 20110524
  Receipt Date: 20110203
  Transmission Date: 20111010
  Serious: No
  Sender: FDA-Public Use
  Company Number: 026813

PATIENT
  Sex: Female

DRUGS (3)
  1. CERTOLIZUMAB [Suspect]
     Dosage: (SUBCUTANEOUS)
     Route: 058
  2. METHOTREXATE [Concomitant]
  3. PREDNISONE [Concomitant]

REACTIONS (1)
  - NODULE [None]
